FAERS Safety Report 21854595 (Version 1)
Quarter: 2023Q1

REPORT INFORMATION
  Report Type: Spontaneous
  Country: US (occurrence: None)
  Receive Date: 20230112
  Receipt Date: 20230112
  Transmission Date: 20230418
  Serious: Yes (Death, Hospitalization)
  Sender: FDA-Public Use
  Company Number: None

PATIENT
  Age: 64 Year
  Sex: Female
  Weight: 69.2 kg

DRUGS (2)
  1. CISPLATIN [Suspect]
     Active Substance: CISPLATIN
     Dates: end: 20220830
  2. GEMCITABINE HYDROCHLORIDE [Suspect]
     Active Substance: GEMCITABINE HYDROCHLORIDE
     Dates: end: 20221101

REACTIONS (14)
  - Post procedural complication [None]
  - Atrial fibrillation [None]
  - Hypotension [None]
  - Acute kidney injury [None]
  - Lactic acidosis [None]
  - Duodenal perforation [None]
  - Toxic encephalopathy [None]
  - Sepsis [None]
  - Acute respiratory failure [None]
  - Multiple organ dysfunction syndrome [None]
  - Haemodialysis [None]
  - Anaemia [None]
  - Leukocytosis [None]
  - Renal failure [None]

NARRATIVE: CASE EVENT DATE: 20221224
